FAERS Safety Report 17023073 (Version 1)
Quarter: 2019Q4

REPORT INFORMATION
  Report Type: Spontaneous
  Country: GB (occurrence: US)
  Receive Date: 20191112
  Receipt Date: 20191112
  Transmission Date: 20200122
  Serious: Yes (Hospitalization)
  Sender: FDA-Public Use
  Company Number: US-CANTON LABORATORIES, LLC-2076743

PATIENT
  Age: 58 Year
  Sex: Male

DRUGS (2)
  1. ACETYLSALICYLIC ACID) [Concomitant]
     Route: 065
  2. NAPROSYN [Suspect]
     Active Substance: NAPROXEN
     Indication: ARTHRALGIA
     Route: 048
     Dates: start: 20191015, end: 20191022

REACTIONS (4)
  - Malaise [Unknown]
  - Blood urea increased [Unknown]
  - Duodenal ulcer haemorrhage [Recovering/Resolving]
  - Melaena [Unknown]

NARRATIVE: CASE EVENT DATE: 20191023
